FAERS Safety Report 17100559 (Version 1)
Quarter: 2019Q4

REPORT INFORMATION
  Report Type: Report from Study
  Country: DE (occurrence: DE)
  Receive Date: 20191202
  Receipt Date: 20191202
  Transmission Date: 20200122
  Serious: Yes (Hospitalization, Disabling)
  Sender: FDA-Public Use
  Company Number: DE-MYLANLABS-2019M1115783

PATIENT
  Age: 65 Year
  Sex: Female
  Weight: 86 kg

DRUGS (3)
  1. ZOLEDRONIC ACID [Suspect]
     Active Substance: ZOLEDRONIC ACID
     Indication: BREAST CANCER
     Dosage: 4 MILLIGRAM
     Route: 042
  2. PACLITAXEL. [Suspect]
     Active Substance: PACLITAXEL
     Indication: BREAST CANCER
     Dosage: 890 MILLIGRAM
     Route: 042
  3. BEVACIZUMAB. [Suspect]
     Active Substance: BEVACIZUMAB
     Indication: BREAST CANCER
     Dosage: 890 MILLIGRAM
     Route: 042

REACTIONS (5)
  - Subcutaneous abscess [Recovered/Resolved]
  - Infection [Recovered/Resolved]
  - Impaired healing [Not Recovered/Not Resolved]
  - Vein disorder [Recovered/Resolved]
  - Arthralgia [Recovered/Resolved with Sequelae]

NARRATIVE: CASE EVENT DATE: 20120427
